FAERS Safety Report 5592923-5 (Version None)
Quarter: 2008Q1

REPORT INFORMATION
  Report Type: 
  Country: None (occurrence: None)
  Receive Date: 20080114
  Receipt Date: 20080114
  Transmission Date: 20080703
  Serious: Yes (Other)
  Sender: FDA-Public Use
  Company Number: None

PATIENT
  Age: 42 Year
  Sex: Female
  Weight: 90.7194 kg

DRUGS (1)
  1. LUNESTA [Suspect]
     Indication: INSOMNIA
     Dosage: 2MG  HS PRN  PO (DURATION: ABOUT TWO WEEKS OFF AND ON )
     Route: 048

REACTIONS (3)
  - ANXIETY [None]
  - HALLUCINATIONS, MIXED [None]
  - STRESS [None]
